FAERS Safety Report 10089497 (Version 1)
Quarter: 2014Q2

REPORT INFORMATION
  Report Type: Spontaneous
  Country: CH (occurrence: CH)
  Receive Date: 20140421
  Receipt Date: 20140421
  Transmission Date: 20141212
  Serious: Yes (Other)
  Sender: FDA-Public Use
  Company Number: CH-ELI_LILLY_AND_COMPANY-CH201404003738

PATIENT
  Age: 47 Year
  Sex: Male

DRUGS (18)
  1. ZYPREXA [Suspect]
     Indication: SCHIZOPHRENIA, PARANOID TYPE
     Dosage: 10 MG, UNKNOWN
     Route: 048
     Dates: start: 20130829, end: 20130829
  2. LEPONEX [Suspect]
     Indication: SCHIZOPHRENIA, PARANOID TYPE
     Dosage: 350 MG, UNK
     Route: 065
     Dates: end: 20130826
  3. LEPONEX [Suspect]
     Dosage: 50 MG, UNK
     Route: 065
     Dates: start: 20130828, end: 20130828
  4. LEPONEX [Suspect]
     Dosage: 200 MG, UNK
     Route: 065
     Dates: start: 20130829, end: 20130829
  5. CLOPIXOL (HYDROCHLORIDE) [Suspect]
     Indication: SCHIZOPHRENIA, PARANOID TYPE
     Dosage: 40 MG, UNK
     Route: 065
     Dates: start: 20130826, end: 20130826
  6. CLOPIXOL (HYDROCHLORIDE) [Suspect]
     Dosage: 30 MG, UNK
     Route: 065
     Dates: start: 20130827, end: 20130827
  7. CLOPIXOL ACUTARD [Suspect]
     Indication: SCHIZOPHRENIA, PARANOID TYPE
     Dosage: 100 MG, UNK
     Route: 030
     Dates: start: 20130827, end: 20130827
  8. HALDOL                             /00027401/ [Suspect]
     Indication: SCHIZOPHRENIA, PARANOID TYPE
     Dosage: 10 MG, UNKNOWN
     Route: 065
     Dates: start: 20130826, end: 20130826
  9. HALDOL                             /00027401/ [Suspect]
     Dosage: 10 MG, UNK
     Route: 065
     Dates: start: 20130830, end: 20130830
  10. TEMESTA                            /00273201/ [Concomitant]
     Dosage: 1 MG, UNK
     Dates: end: 20130825
  11. TEMESTA                            /00273201/ [Concomitant]
     Dosage: 2 MG, UNK
     Dates: start: 20130828, end: 20130829
  12. TEMESTA                            /00273201/ [Concomitant]
     Dosage: 3.5 MG, UNKNOWN
     Dates: start: 20130826, end: 20130826
  13. PSYCHOPAX [Concomitant]
     Dosage: 20 MG, UNK
     Dates: start: 20130827, end: 20130827
  14. PSYCHOPAX [Concomitant]
     Dosage: 15 MG, UNK
     Dates: start: 20130828, end: 20130828
  15. PSYCHOPAX [Concomitant]
     Dosage: 40 MG, UNK
     Dates: start: 20130829, end: 20130829
  16. PSYCHOPAX [Concomitant]
     Dosage: 10 MG, UNK
     Dates: start: 20130830, end: 20130830
  17. VALIUM                             /00017001/ [Concomitant]
     Dosage: 10 MG, UNK
     Dates: start: 20130827, end: 20130827
  18. AKINETON                           /00079501/ [Concomitant]
     Dosage: 5 MG, UNK
     Dates: start: 20130827, end: 20130827

REACTIONS (6)
  - Metabolic acidosis [Recovered/Resolved]
  - Pneumonia aspiration [Recovered/Resolved]
  - Respiratory failure [Recovered/Resolved]
  - Compartment syndrome [Recovered/Resolved]
  - Transaminases increased [Recovered/Resolved]
  - Neuroleptic malignant syndrome [Recovered/Resolved]
